FAERS Safety Report 15067367 (Version 1)
Quarter: 2018Q2

REPORT INFORMATION
  Report Type: Spontaneous
  Country: FR (occurrence: FR)
  Receive Date: 20180626
  Receipt Date: 20180626
  Transmission Date: 20180711
  Serious: Yes (Hospitalization)
  Sender: FDA-Public Use
  Company Number: FR-ALLERGAN-1832341US

PATIENT
  Age: 62 Year
  Sex: Female

DRUGS (8)
  1. REPAGLINIDE. [Concomitant]
     Active Substance: REPAGLINIDE
     Indication: TYPE 2 DIABETES MELLITUS
     Dosage: UNK, UNKNOWN
     Route: 048
  2. HALDOL [Suspect]
     Active Substance: HALOPERIDOL
     Indication: DEPRESSION
     Dosage: 2 DF, QD
     Route: 048
  3. TERCIAN [Suspect]
     Active Substance: CYAMEMAZINE
     Indication: DEPRESSION
     Dosage: 0.5 DF, QD
     Route: 048
  4. METFORMINE [Concomitant]
     Active Substance: METFORMIN HYDROCHLORIDE
     Indication: TYPE 2 DIABETES MELLITUS
     Dosage: 3 G, QD
     Route: 048
  5. SULPIRIDE [Suspect]
     Active Substance: SULPIRIDE
     Indication: DEPRESSION
     Dosage: UNK, UNKNOWN
     Route: 047
  6. AKINETON L.P. [Concomitant]
     Active Substance: BIPERIDEN
     Indication: PARKINSONISM
     Dosage: 1 DF, QD
     Route: 048
  7. DIPIPERON [Suspect]
     Active Substance: PIPAMPERONE
     Indication: DEPRESSION
     Dosage: 0.5 DF, QD
     Route: 047
  8. CITALOPRAM HYDROBROMIDE - BP [Suspect]
     Active Substance: CITALOPRAM HYDROBROMIDE
     Indication: DEPRESSION
     Dosage: 20 MG, QD
     Route: 048

REACTIONS (3)
  - Acute kidney injury [Recovered/Resolved]
  - Rhabdomyolysis [Recovering/Resolving]
  - Fall [Recovered/Resolved]

NARRATIVE: CASE EVENT DATE: 20180313
